FAERS Safety Report 4862521-7 (Version None)
Quarter: 2005Q4

REPORT INFORMATION
  Report Type: 
  Country: None (occurrence: None)
  Receive Date: 20051221
  Receipt Date: 19931018
  Transmission Date: 20060501
  Serious: Yes (Hospitalization, Disabling)
  Sender: FDA-Public Use
  Company Number: US-GLAXOSMITHKLINE-A0001969A

PATIENT
  Age: 61 Year
  Sex: Female

DRUGS (14)
  1. FORTAZ [Suspect]
     Indication: UROSEPSIS
     Dosage: 500MG TWICE PER DAY
     Route: 042
     Dates: start: 19930701, end: 19930714
  2. GENTAMICIN [Suspect]
     Dosage: 80MG PER DAY
     Route: 042
     Dates: start: 19930702, end: 19930710
  3. LASIX [Concomitant]
     Dosage: 80MG THREE TIMES PER DAY
     Route: 048
     Dates: start: 19930704, end: 19930718
  4. PREDNISONE TAB [Concomitant]
  5. VANCERIL [Concomitant]
  6. ATROVENT [Concomitant]
  7. CAPTOPRIL [Concomitant]
     Indication: HYPERTENSION
     Dosage: 50MG THREE TIMES PER DAY
     Route: 050
     Dates: start: 19930601, end: 19930724
  8. VERAPAMIL [Concomitant]
     Indication: ATRIAL FIBRILLATION
     Dosage: 120MG THREE TIMES PER DAY
     Route: 050
     Dates: start: 19930709, end: 19930919
  9. HEPARIN [Concomitant]
     Dosage: 5000UNIT TWICE PER DAY
     Route: 058
     Dates: start: 19930609, end: 19930621
  10. CLINDAMYCIN [Concomitant]
  11. PEPCID [Concomitant]
  12. HYDRALAZINE [Concomitant]
     Indication: HYPERTENSION
     Dosage: 25MG THREE TIMES PER DAY
     Route: 042
     Dates: start: 19930704, end: 19930726
  13. NIZATIDINE [Concomitant]
     Dosage: 150MG TWICE PER DAY
     Route: 048
     Dates: start: 19930709, end: 19930725
  14. SOLU-MEDROL [Concomitant]
     Indication: CHRONIC OBSTRUCTIVE PULMONARY DISEASE
     Dosage: 40MG THREE TIMES PER DAY
     Route: 042
     Dates: start: 19930602, end: 19930714

REACTIONS (3)
  - CLOSTRIDIUM COLITIS [None]
  - RENAL FAILURE [None]
  - RENAL FUNCTION TEST ABNORMAL [None]
